FAERS Safety Report 6413503-5 (Version None)
Quarter: 2009Q4

REPORT INFORMATION
  Report Type: 
  Country: None (occurrence: None)
  Receive Date: 20091026
  Receipt Date: 20091012
  Transmission Date: 20100525
  Serious: Yes (Other)
  Sender: FDA-Public Use
  Company Number: PHHY2009SV42404

PATIENT
  Age: 47 Year
  Sex: Female

DRUGS (2)
  1. DIOVAN HCT [Suspect]
     Indication: HYPERTENSION
     Dosage: 160/12.5 MG
     Dates: end: 20090301
  2. LOSARTAN [Concomitant]
     Indication: CARDIOMEGALY

REACTIONS (6)
  - ASTHMA [None]
  - CARDIOMEGALY [None]
  - FATIGUE [None]
  - FOREIGN BODY [None]
  - RESPIRATORY ARREST [None]
  - THORACIC OPERATION [None]
